FAERS Safety Report 4849930-7 (Version None)
Quarter: 2005Q4

REPORT INFORMATION
  Report Type: 
  Country: None (occurrence: None)
  Receive Date: 20051209
  Receipt Date: 20051205
  Transmission Date: 20060501
  Serious: Yes (Other)
  Sender: FDA-Public Use
  Company Number: AU-MERCK-0512AUS00124

PATIENT

DRUGS (1)
  1. SINGULAIR [Suspect]
     Route: 065

REACTIONS (1)
  - SIMPLE PARTIAL SEIZURES [None]
